FAERS Safety Report 6237572-0 (Version None)
Quarter: 2009Q2

REPORT INFORMATION
  Report Type: 
  Country: None (occurrence: None)
  Receive Date: 20090617
  Receipt Date: 20090601
  Transmission Date: 20091009
  Serious: Yes (Hospitalization, Other)
  Sender: FDA-Public Use
  Company Number: 2009S1000006

PATIENT
  Age: 56 Year
  Sex: Female
  Weight: 84.8226 kg

DRUGS (16)
  1. PHOSPHOSODA FLAVOR NOT SPECIFIED [Suspect]
     Indication: COLONOSCOPY
     Dosage: 90 ML; TOTAL; PO
     Route: 048
     Dates: start: 20061120, end: 20061121
  2. ALPRAZOLAM [Concomitant]
  3. BUPROPION HCL [Concomitant]
  4. ESTRADIOL [Concomitant]
  5. FELODIPINE [Concomitant]
  6. LEVOTHYROXINE SODIUM [Concomitant]
  7. RANITIDINE [Concomitant]
  8. SEROQUEL [Concomitant]
  9. SYNTHROID [Concomitant]
  10. PREVACID [Concomitant]
  11. PRINIVIL /00894001/ [Concomitant]
  12. ALPRAZOLAM [Concomitant]
  13. SEROQUEL [Concomitant]
  14. EXCREDRIN P.M. /00607001/ [Concomitant]
  15. ESTRACE [Concomitant]
  16. DEMEROL [Concomitant]

REACTIONS (4)
  - COLITIS ISCHAEMIC [None]
  - HAEMOGLOBIN DECREASED [None]
  - RENAL FAILURE ACUTE [None]
  - RENAL FAILURE CHRONIC [None]
